FAERS Safety Report 16198362 (Version 1)
Quarter: 2019Q2

REPORT INFORMATION
  Report Type: Spontaneous
  Country: US (occurrence: US)
  Receive Date: 20190415
  Receipt Date: 20190415
  Transmission Date: 20190711
  Serious: No
  Sender: FDA-Public Use
  Company Number: US-BAYER-2019-076264

PATIENT
  Age: 56 Year
  Sex: Female

DRUGS (1)
  1. BETASERON [Suspect]
     Active Substance: INTERFERON BETA-1B
     Indication: MULTIPLE SCLEROSIS
     Dosage: 0.25 MG

REACTIONS (6)
  - Nausea [None]
  - Hyperhidrosis [None]
  - Injection site reaction [None]
  - Malaise [None]
  - Lack of injection site rotation [None]
  - Cystitis [None]

NARRATIVE: CASE EVENT DATE: 20190410
